FAERS Safety Report 6112055-7 (Version None)
Quarter: 2009Q1

REPORT INFORMATION
  Report Type: 
  Country: None (occurrence: None)
  Receive Date: 20090311
  Receipt Date: 20090303
  Transmission Date: 20090719
  Serious: Yes (Other)
  Sender: FDA-Public Use
  Company Number: US-PFIZER INC-2009178490

PATIENT
  Sex: Male

DRUGS (1)
  1. DETROL LA [Suspect]

REACTIONS (1)
  - MENTAL IMPAIRMENT [None]
